FAERS Safety Report 12659612 (Version 5)
Quarter: 2016Q4

REPORT INFORMATION
  Report Type: Report from Study
  Country: US (occurrence: US)
  Receive Date: 20160817
  Receipt Date: 20161114
  Transmission Date: 20170207
  Serious: Yes (Death, Hospitalization, Other)
  Sender: FDA-Public Use
  Company Number: US-ASTRAZENECA-2016SE69293

PATIENT
  Sex: Male

DRUGS (1)
  1. TAGRISSO [Suspect]
     Active Substance: OSIMERTINIB
     Indication: LUNG NEOPLASM MALIGNANT
     Route: 048
     Dates: start: 20160527

REACTIONS (6)
  - Urinary tract infection [Unknown]
  - Back pain [Unknown]
  - Death [Fatal]
  - Cerebrovascular accident [Unknown]
  - Fatigue [Unknown]
  - Onychoclasis [Unknown]
